FAERS Safety Report 15823100 (Version 1)
Quarter: 2019Q1

REPORT INFORMATION
  Report Type: Spontaneous
  Country: GB (occurrence: PT)
  Receive Date: 20190114
  Receipt Date: 20190114
  Transmission Date: 20190417
  Serious: Yes (Other)
  Sender: FDA-Public Use
  Company Number: PT-FRESENIUS KABI-FK201900447

PATIENT
  Age: 59 Year
  Sex: Female

DRUGS (4)
  1. VANCOMYCIN (MANUFACTURER UNKNOWN) [Suspect]
     Active Substance: VANCOMYCIN
     Indication: PRODUCT USED FOR UNKNOWN INDICATION
     Route: 042
     Dates: start: 20160401
  2. FENTANYL. [Concomitant]
     Active Substance: FENTANYL
     Indication: PRODUCT USED FOR UNKNOWN INDICATION
     Route: 065
  3. ROCURONIUM BROMIDE. [Concomitant]
     Active Substance: ROCURONIUM BROMIDE
     Indication: PRODUCT USED FOR UNKNOWN INDICATION
     Route: 065
  4. PROPOFOL. [Concomitant]
     Active Substance: PROPOFOL
     Indication: PRODUCT USED FOR UNKNOWN INDICATION
     Route: 065

REACTIONS (5)
  - Face oedema [Recovered/Resolved]
  - Hypotension [Recovered/Resolved]
  - Oxygen saturation decreased [Recovered/Resolved]
  - Bronchospasm [Recovered/Resolved]
  - Rash generalised [Recovered/Resolved]

NARRATIVE: CASE EVENT DATE: 20160401
